FAERS Safety Report 7722713-6 (Version None)
Quarter: 2011Q3

REPORT INFORMATION
  Report Type: 
  Country: None (occurrence: None)
  Receive Date: 20110831
  Receipt Date: 20110822
  Transmission Date: 20111222
  Serious: Yes (Other)
  Sender: FDA-Public Use
  Company Number: US-ASTRAZENECA-2011SE33002

PATIENT
  Sex: Female

DRUGS (19)
  1. DEPAKOTE ER [Concomitant]
  2. PROMETRIUM [Concomitant]
  3. ZOCOR [Concomitant]
  4. BIOTIN [Concomitant]
  5. VIVELLE-DOT [Concomitant]
  6. MULTI-VITAMIN [Concomitant]
  7. SYMBICORT [Suspect]
     Indication: ASTHMA
     Dosage: 80/4.5 TWO PUFFS TWICE A DAY
     Route: 055
  8. NEXIUM [Suspect]
     Route: 048
  9. IBUPROFEN [Concomitant]
     Dosage: 2 SQ ONCE OR TWICE A DAY
  10. VIT D AND CALCIUM [Concomitant]
  11. FISH OIL [Concomitant]
  12. ALAVERT [Concomitant]
  13. ZANTAC [Concomitant]
  14. ATIVAN [Concomitant]
  15. NASONEX [Concomitant]
     Dosage: 2 SQ ONCE OR TWICE A DAY
  16. ALBUTEROL SULFATE AUTOHALER [Concomitant]
  17. XOPENEX [Concomitant]
     Dosage: 2-4 PUFFS AS NEEDED
  18. SINGULAIR [Concomitant]
  19. ZADITOR [Concomitant]
     Dosage: 1 DROP TWICE A DAY AS NEEDED

REACTIONS (7)
  - CONJUNCTIVITIS ALLERGIC [None]
  - STRESS [None]
  - CHEST DISCOMFORT [None]
  - TONGUE ULCERATION [None]
  - RHINITIS PERENNIAL [None]
  - URTICARIA AQUAGENIC [None]
  - VESTIBULITIS [None]
